FAERS Safety Report 16727861 (Version 2)
Quarter: 2019Q4

REPORT INFORMATION
  Report Type: Spontaneous
  Country: US (occurrence: US)
  Receive Date: 20190822
  Receipt Date: 20191010
  Transmission Date: 20200122
  Serious: No
  Sender: FDA-Public Use
  Company Number: US-ASTRAZENECA-2019SF06419

PATIENT
  Sex: Male

DRUGS (1)
  1. SYMBICORT [Suspect]
     Active Substance: BUDESONIDE\FORMOTEROL FUMARATE DIHYDRATE
     Dosage: 80/4.5 MCG UNKNOWN UNKNOWN
     Route: 055

REACTIONS (8)
  - Dysphonia [Unknown]
  - Product use issue [Unknown]
  - Asthma [Unknown]
  - Circumstance or information capable of leading to device use error [Unknown]
  - Tooth injury [Unknown]
  - Device failure [Unknown]
  - Drug hypersensitivity [Unknown]
  - Tooth disorder [Unknown]
